FAERS Safety Report 15883483 (Version 1)
Quarter: 2019Q1

REPORT INFORMATION
  Report Type: Spontaneous
  Country: US (occurrence: US)
  Receive Date: 20190107
  Receipt Date: 20190107
  Transmission Date: 20190417
  Serious: Yes (Other)
  Sender: FDA-Public Use
  Company Number: None

PATIENT
  Age: 57 Year
  Sex: Male
  Weight: 78.93 kg

DRUGS (7)
  1. MVI [Concomitant]
     Active Substance: VITAMINS
  2. OLANZAPINE. [Concomitant]
     Active Substance: OLANZAPINE
  3. VITAMIN E [Concomitant]
     Active Substance: .ALPHA.-TOCOPHEROL
  4. HCTZ [Concomitant]
     Active Substance: HYDROCHLOROTHIAZIDE
  5. BENZTROPINE. [Concomitant]
     Active Substance: BENZTROPINE
  6. VALBENAZINE [Suspect]
     Active Substance: VALBENAZINE
     Indication: TARDIVE DYSKINESIA
     Route: 048
  7. TRAZODONE [Concomitant]
     Active Substance: TRAZODONE HYDROCHLORIDE

REACTIONS (3)
  - Palpitations [None]
  - Dizziness [None]
  - Chest pain [None]
